FAERS Safety Report 9827931 (Version 1)
Quarter: 2014Q1

REPORT INFORMATION
  Report Type: Spontaneous
  Country: US (occurrence: US)
  Receive Date: 20140117
  Receipt Date: 20140117
  Transmission Date: 20141002
  Serious: Yes (Other)
  Sender: FDA-Public Use
  Company Number: US-GE HEALTHCARE MEDICAL DIAGNOSTICS-OSCN-PR-1312S-0144

PATIENT
  Age: 60 Year
  Sex: Female

DRUGS (4)
  1. GADOLINIUM (UNSPECIFIED) [Suspect]
     Indication: VISUAL IMPAIRMENT
     Route: 042
     Dates: start: 20030226, end: 20030226
  2. GADOLINIUM (UNSPECIFIED) [Suspect]
     Indication: HEADACHE
  3. CELLCEPT [Concomitant]
  4. PROGRAF [Concomitant]

REACTIONS (1)
  - Nephrogenic systemic fibrosis [Not Recovered/Not Resolved]
